FAERS Safety Report 10763447 (Version 1)
Quarter: 2015Q1

REPORT INFORMATION
  Report Type: Spontaneous
  Country: FR (occurrence: FR)
  Receive Date: 20150204
  Receipt Date: 20150204
  Transmission Date: 20150721
  Serious: Yes (Hospitalization)
  Sender: FDA-Public Use
  Company Number: FR-SA-2015SA010848

PATIENT
  Age: 90 Year
  Sex: Female
  Weight: 67.6 kg

DRUGS (11)
  1. ACTONEL [Concomitant]
     Active Substance: RISEDRONATE SODIUM
     Route: 048
  2. RILMENIDINE [Concomitant]
     Active Substance: RILMENIDINE
     Route: 048
  3. TEMESTA [Concomitant]
     Active Substance: LORAZEPAM
     Route: 048
  4. AUGMENTIN [Concomitant]
     Active Substance: AMOXICILLIN\CLAVULANATE POTASSIUM
     Indication: LUNG DISORDER
     Dates: start: 201409
  5. CACIT VITAMINE D3 [Concomitant]
     Active Substance: CALCIUM CARBONATE\CHOLECALCIFEROL
     Route: 048
  6. LOVENOX [Suspect]
     Active Substance: ENOXAPARIN SODIUM
     Indication: DEEP VEIN THROMBOSIS
     Route: 058
     Dates: start: 20140910
  7. EUPRESSYL [Concomitant]
     Active Substance: URAPIDIL
     Route: 048
  8. SYMBICORT [Concomitant]
     Active Substance: BUDESONIDE\FORMOTEROL FUMARATE DIHYDRATE
     Dosage: STRENGTH: 200/6 MG
     Route: 055
  9. ETIOVEN [Concomitant]
     Active Substance: NAFTAZONE
     Dosage: STRENGTH: 30 MG
     Route: 048
  10. KARDEGIC [Concomitant]
     Active Substance: ASPIRIN LYSINE
     Dosage: STRENGTH: 75 MG
     Dates: start: 201409
  11. EBIXA [Concomitant]
     Active Substance: MEMANTINE HYDROCHLORIDE
     Dosage: STRENGTH: 20 MG
     Dates: start: 201409

REACTIONS (5)
  - Aplastic anaemia [Recovering/Resolving]
  - Oedema peripheral [Recovering/Resolving]
  - Malnutrition [Recovering/Resolving]
  - Haematoma [Recovered/Resolved]
  - Normochromic normocytic anaemia [Recovering/Resolving]

NARRATIVE: CASE EVENT DATE: 201409
